FAERS Safety Report 4655212-9 (Version None)
Quarter: 2005Q2

REPORT INFORMATION
  Report Type: 
  Country: None (occurrence: None)
  Receive Date: 20050506
  Receipt Date: 20041203
  Transmission Date: 20051028
  Serious: Yes (Life-Threatening)
  Sender: FDA-Public Use
  Company Number: GB-GLAXOSMITHKLINE-B0359691A

PATIENT
  Sex: Male

DRUGS (1)
  1. PAROXETINE HYDROCHLORIDE [Suspect]
     Indication: PANIC ATTACK
     Dosage: 20MG PER DAY
     Route: 065
     Dates: start: 20000510, end: 20040301

REACTIONS (3)
  - COMPLETED SUICIDE [None]
  - NAUSEA [None]
  - OVERDOSE [None]
